FAERS Safety Report 23587344 (Version 3)
Quarter: 2024Q2

REPORT INFORMATION
  Report Type: Spontaneous
  Country: JP (occurrence: JP)
  Receive Date: 20240301
  Receipt Date: 20240425
  Transmission Date: 20240715
  Serious: Yes (Death)
  Sender: FDA-Public Use
  Company Number: JP-PFIZER INC-PV202400028921

PATIENT
  Age: 81 Year
  Sex: Male
  Weight: 55.6 kg

DRUGS (7)
  1. TAFAMIDIS [Suspect]
     Active Substance: TAFAMIDIS
     Dosage: UNK
     Dates: start: 20231115
  2. FUROSEMIDE [Concomitant]
     Active Substance: FUROSEMIDE
     Dosage: UNK
  3. CLOPIDOGREL [Concomitant]
     Active Substance: CLOPIDOGREL BISULFATE
     Dosage: UNK
  4. SODIUM FERROUS CITRATE [Concomitant]
     Active Substance: SODIUM FERROUS CITRATE
     Dosage: UNK
  5. HUMALOG [Concomitant]
     Active Substance: INSULIN LISPRO
     Dosage: UNK
  6. LINAGLIPTIN [Concomitant]
     Active Substance: LINAGLIPTIN
     Dosage: UNK
  7. REPAGLINIDE [Concomitant]
     Active Substance: REPAGLINIDE
     Dosage: UNK

REACTIONS (2)
  - Head injury [Fatal]
  - Fall [Fatal]
